FAERS Safety Report 25387656 (Version 3)
Quarter: 2025Q4

REPORT INFORMATION
  Report Type: Spontaneous
  Country: JP (occurrence: JP)
  Receive Date: 20250603
  Receipt Date: 20251116
  Transmission Date: 20260118
  Serious: Yes (Death, Other)
  Sender: TAKEDA
  Company Number: JP-TAKEDA-2025TJP005301

PATIENT
  Age: 51 Year
  Sex: Female
  Weight: 54 kg

DRUGS (2)
  1. ALUNBRIG [Suspect]
     Active Substance: BRIGATINIB
     Indication: Non-small cell lung cancer stage IV
     Dosage: 90 MILLIGRAM, QD
     Dates: start: 20240912, end: 20240918
  2. ALUNBRIG [Suspect]
     Active Substance: BRIGATINIB
     Dosage: 180 MILLIGRAM, QD
     Dates: start: 20240919, end: 20250416

REACTIONS (1)
  - Non-small cell lung cancer stage IV [Fatal]

NARRATIVE: CASE EVENT DATE: 20250418
